FAERS Safety Report 8159474-5 (Version None)
Quarter: 2012Q1

REPORT INFORMATION
  Report Type: 
  Country: None (occurrence: None)
  Receive Date: 20120223
  Receipt Date: 20110401
  Transmission Date: 20120608
  Serious: Yes (Congenital Anomaly)
  Sender: FDA-Public Use
  Company Number: DE-UCBSA-030702

PATIENT

DRUGS (3)
  1. VALPROIC ACID [Concomitant]
     Indication: EPILEPSY
     Route: 064
  2. LEVETIRACETAM [Suspect]
     Indication: EPILEPSY
     Dosage: DAILY DOSE: 2000
     Route: 064
  3. LAMOTRIGINE [Concomitant]
     Indication: EPILEPSY
     Route: 064

REACTIONS (2)
  - FOETAL EXPOSURE DURING PREGNANCY [None]
  - HYPOSPADIAS [None]
